FAERS Safety Report 9745778 (Version 1)
Quarter: 2013Q4

REPORT INFORMATION
  Report Type: Spontaneous
  Country: CN (occurrence: None)
  Receive Date: 20131205
  Receipt Date: 20131205
  Transmission Date: 20140711
  Serious: Yes (Other)
  Sender: FDA-Public Use
  Company Number: CN-JNJFOC-20131118214

PATIENT
  Age: 25 Year
  Sex: Male

DRUGS (4)
  1. DECITABINE (DECITABINE) LYOPHILIZED POWDER [Suspect]
     Route: 042
  2. ACLARUBICIN [Suspect]
     Route: 042
  3. CYTARABINE [Suspect]
     Indication: ACUTE MYELOID LEUKAEMIA RECURRENT
     Route: 058
  4. GRANULOCYTE COLONY-STIMULATING FACTOR NOS [Suspect]

REACTIONS (4)
  - Infection [None]
  - Liver injury [None]
  - Blood disorder [None]
  - Drug ineffective [None]
